FAERS Safety Report 16527621 (Version 2)
Quarter: 2019Q3

REPORT INFORMATION
  Report Type: Spontaneous
  Country: US (occurrence: US)
  Receive Date: 20190703
  Receipt Date: 20190723
  Transmission Date: 20191004
  Serious: Yes (Death)
  Sender: FDA-Public Use
  Company Number: US-ALKERMES INC.-ALK-2019-003493

PATIENT
  Age: 26 Year
  Sex: Male
  Weight: 53.97 kg

DRUGS (1)
  1. VIVITROL [Suspect]
     Active Substance: NALTREXONE
     Indication: DRUG DEPENDENCE
     Dosage: 380 MG, QMO
     Route: 030
     Dates: start: 20190320, end: 20190424

REACTIONS (1)
  - Death [Fatal]

NARRATIVE: CASE EVENT DATE: 20190618
